FAERS Safety Report 6290698-8 (Version None)
Quarter: 2009Q3

REPORT INFORMATION
  Report Type: 
  Country: None (occurrence: None)
  Receive Date: 20090730
  Receipt Date: 20090716
  Transmission Date: 20100115
  Serious: Yes (Hospitalization, Other)
  Sender: FDA-Public Use
  Company Number: JP-PFIZER INC-2009243262

PATIENT
  Age: 81 Year

DRUGS (1)
  1. ZITHROMAX [Suspect]
     Indication: OTITIS MEDIA ACUTE
     Dosage: 500 MG/DAY
     Route: 048
     Dates: start: 20080614, end: 20080616

REACTIONS (1)
  - AGRANULOCYTOSIS [None]
